FAERS Safety Report 15487046 (Version 1)
Quarter: 2018Q4

REPORT INFORMATION
  Report Type: Spontaneous
  Country: US (occurrence: US)
  Receive Date: 20181011
  Receipt Date: 20181011
  Transmission Date: 20190205
  Serious: Yes (Disabling)
  Sender: FDA-Public Use
  Company Number: None

PATIENT
  Age: 46 Year
  Sex: Female
  Weight: 83.01 kg

DRUGS (1)
  1. HEPARIN [Suspect]
     Active Substance: HEPARIN SODIUM
     Indication: ANTICOAGULANT THERAPY

REACTIONS (14)
  - Blood pressure increased [None]
  - Pain in extremity [None]
  - Fibromyalgia [None]
  - Burning sensation [None]
  - Bone loss [None]
  - Rotator cuff syndrome [None]
  - Arthritis [None]
  - Throat tightness [None]
  - Paraesthesia oral [None]
  - Pain [None]
  - Neuropathy peripheral [None]
  - Limb discomfort [None]
  - Musculoskeletal pain [None]
  - Depression [None]

NARRATIVE: CASE EVENT DATE: 20170315
